FAERS Safety Report 16337672 (Version 8)
Quarter: 2020Q3

REPORT INFORMATION
  Report Type: Report from Study
  Country: GB (occurrence: GB)
  Receive Date: 20190521
  Receipt Date: 20200716
  Transmission Date: 20201102
  Serious: Yes (Other)
  Sender: FDA-Public Use
  Company Number: PHHY2019GB088581

PATIENT
  Age: 58 Year
  Sex: Female

DRUGS (4)
  1. ASPIRIN. [Concomitant]
     Active Substance: ASPIRIN
     Indication: PRODUCT USED FOR UNKNOWN INDICATION
     Dosage: UNK
     Route: 065
  2. COSENTYX [Suspect]
     Active Substance: SECUKINUMAB
     Indication: PSORIASIS
     Dosage: 300 MG, QMO
     Route: 058
     Dates: start: 20180910
  3. RIVAROXABAN [Concomitant]
     Active Substance: RIVAROXABAN
     Indication: PRODUCT USED FOR UNKNOWN INDICATION
     Dosage: UNK
     Route: 065
  4. FUROSEMIDE. [Concomitant]
     Active Substance: FUROSEMIDE
     Indication: PRODUCT USED FOR UNKNOWN INDICATION
     Dosage: UNK
     Route: 065

REACTIONS (19)
  - Gout [Unknown]
  - Psoriasis [Unknown]
  - Groin pain [Unknown]
  - Diverticulitis [Unknown]
  - Illness [Unknown]
  - Tremor [Unknown]
  - Arthralgia [Unknown]
  - Oedema peripheral [Unknown]
  - Anxiety [Unknown]
  - Nasal discomfort [Unknown]
  - Cellulitis [Unknown]
  - Pain of skin [Unknown]
  - Depression [Unknown]
  - Localised infection [Unknown]
  - Stress [Not Recovered/Not Resolved]
  - Hypotrichosis [Unknown]
  - Pain [Unknown]
  - Breast pain [Unknown]
  - Arthritis [Unknown]
